FAERS Safety Report 13269878 (Version 1)
Quarter: 2017Q1

REPORT INFORMATION
  Report Type: Spontaneous
  Country: US (occurrence: US)
  Receive Date: 20170224
  Receipt Date: 20170224
  Transmission Date: 20170428
  Serious: No
  Sender: FDA-Public Use
  Company Number: US-TAIHO ONCOLOGY INC-EU-2017-00316

PATIENT
  Age: 64 Year
  Sex: Male

DRUGS (7)
  1. DHEA [Concomitant]
     Active Substance: PRASTERONE
     Dosage: NI
  2. COENZYME Q10 [Concomitant]
     Active Substance: UBIDECARENONE
     Dosage: NI
  3. HAWTHORN [Concomitant]
     Active Substance: CRATAEGUS LAEVIGATA FRUIT
     Dosage: NI
  4. WARFARIN [Concomitant]
     Active Substance: WARFARIN
     Dosage: NI
  5. CURCUMA LONGA RHIZOME [Concomitant]
     Dosage: NI
  6. POTASSIUM [Concomitant]
     Active Substance: POTASSIUM
     Dosage: NI
  7. LONSURF [Suspect]
     Active Substance: TIPIRACIL HYDROCHLORIDE\TRIFLURIDINE
     Indication: COLON CANCER
     Route: 048
     Dates: start: 20170211

REACTIONS (3)
  - Nausea [Not Recovered/Not Resolved]
  - Diarrhoea [Not Recovered/Not Resolved]
  - Productive cough [Not Recovered/Not Resolved]

NARRATIVE: CASE EVENT DATE: 201702
